FAERS Safety Report 7287767-2 (Version None)
Quarter: 2011Q1

REPORT INFORMATION
  Report Type: 
  Country: None (occurrence: None)
  Receive Date: 20110207
  Receipt Date: 20110207
  Transmission Date: 20110831
  Serious: Yes (Life-Threatening, Hospitalization)
  Sender: FDA-Public Use
  Company Number: None

PATIENT
  Sex: Female
  Weight: 114 kg

DRUGS (2)
  1. CUBICIN [Concomitant]
  2. DAPTOMYCIN [Suspect]
     Indication: INFECTION
     Dosage: 400MG Q24H IV BOLUS
     Route: 040
     Dates: start: 20110114, end: 20110119

REACTIONS (2)
  - RHABDOMYOLYSIS [None]
  - RENAL FAILURE ACUTE [None]
